FAERS Safety Report 17893259 (Version 2)
Quarter: 2020Q2

REPORT INFORMATION
  Report Type: Spontaneous
  Country: FI (occurrence: FI)
  Receive Date: 20200614
  Receipt Date: 20200616
  Transmission Date: 20200714
  Serious: Yes (Life-Threatening, Other)
  Sender: FDA-Public Use
  Company Number: FI-BAXTER-2020BAX012095

PATIENT
  Age: 19 Year
  Sex: Female
  Weight: 118 kg

DRUGS (10)
  1. TAMOXIFEN [Suspect]
     Active Substance: TAMOXIFEN
     Indication: DESMOID TUMOUR
     Route: 065
  2. DOXIL [Suspect]
     Active Substance: DOXORUBICIN HYDROCHLORIDE
     Indication: DESMOID TUMOUR
     Dosage: PEGYLATED LIPOSOMAL DOXORUBICIN (EVERY 28 DAYS); CYCLICAL
     Route: 042
     Dates: start: 20141203, end: 201502
  3. DOXIL [Suspect]
     Active Substance: DOXORUBICIN HYDROCHLORIDE
     Dosage: UNK - STOPPED
     Route: 065
  4. TOREMIFENE [Suspect]
     Active Substance: TOREMIFENE
     Indication: DESMOID TUMOUR
     Route: 065
  5. RIBOCICLIB. [Suspect]
     Active Substance: RIBOCICLIB
     Indication: DESMOID TUMOUR
     Dosage: 3 WEEKS ON AND 1 WEEK OFF
     Route: 065
     Dates: start: 201701
  6. LETROZOLE. [Suspect]
     Active Substance: LETROZOLE
     Indication: DESMOID TUMOUR
     Route: 065
  7. VINORELBINE [Suspect]
     Active Substance: VINORELBINE TARTRATE
     Indication: DESMOID TUMOUR
     Dosage: ON DAYS 1 AND 8 OF EVERY 21 DAYS CYCLE
     Route: 048
  8. GOSERELIN [Suspect]
     Active Substance: GOSERELIN
     Indication: DESMOID TUMOUR
     Route: 065
  9. RIBOCICLIB. [Suspect]
     Active Substance: RIBOCICLIB
     Route: 065
  10. RIBOCICLIB. [Suspect]
     Active Substance: RIBOCICLIB
     Dosage: UNK - STOPPED
     Route: 065

REACTIONS (2)
  - Bone marrow failure [Recovered/Resolved]
  - Acute promyelocytic leukaemia [Recovered/Resolved]

NARRATIVE: CASE EVENT DATE: 2017
